FAERS Safety Report 4721488-2 (Version None)
Quarter: 2005Q3

REPORT INFORMATION
  Report Type: 
  Country: None (occurrence: None)
  Receive Date: 20050721
  Receipt Date: 20041004
  Transmission Date: 20060218
  Serious: No
  Sender: FDA-Public Use
  Company Number: US-BRISTOL-MYERS SQUIBB COMPANY-12729166

PATIENT
  Sex: Female

DRUGS (24)
  1. COUMADIN [Suspect]
     Indication: PULMONARY THROMBOSIS
     Dosage: BEGAN 3MG QD 1 + 1/2 WKS AGO,INCREASE TO 4MG ON 30-SEP-04,THEN DECREASED, THEN INCREASE TO 4MG QD
     Route: 048
     Dates: start: 20040101
  2. COUMADIN [Suspect]
     Indication: LYMPHADENOPATHY
     Dosage: BEGAN 3MG QD 1 + 1/2 WKS AGO,INCREASE TO 4MG ON 30-SEP-04,THEN DECREASED, THEN INCREASE TO 4MG QD
     Route: 048
     Dates: start: 20040101
  3. NITROGLYCERIN [Concomitant]
  4. FOLIC ACID [Concomitant]
  5. VITAMIN E [Concomitant]
  6. ASCORBIC ACID [Concomitant]
  7. MAG-OX [Concomitant]
  8. POTASSIUM CHLORIDE [Concomitant]
  9. PROTONIX [Concomitant]
  10. BEXTRA [Concomitant]
  11. BUMEX [Concomitant]
  12. ZOCOR [Concomitant]
  13. ACTONEL [Concomitant]
  14. TOPROL-XL [Concomitant]
  15. ALDACTONE [Concomitant]
  16. NITROSTAT [Concomitant]
  17. ONE-A-DAY [Concomitant]
  18. PYRIDOXINE HCL [Concomitant]
  19. OS-CAL [Concomitant]
  20. OCEAN [Concomitant]
  21. VITAMIN B-12 [Concomitant]
  22. ALLEGRA [Concomitant]
  23. DARVOCET [Concomitant]
  24. AMBIEN [Concomitant]

REACTIONS (3)
  - DYSPEPSIA [None]
  - NAUSEA [None]
  - SKIN BURNING SENSATION [None]
